FAERS Safety Report 13398175 (Version 2)
Quarter: 2017Q2

REPORT INFORMATION
  Report Type: Spontaneous
  Country: CH (occurrence: CH)
  Receive Date: 20170403
  Receipt Date: 20170412
  Transmission Date: 20170830
  Serious: Yes (Other)
  Sender: FDA-Public Use
  Company Number: CH-ELI_LILLY_AND_COMPANY-CH201703012107

PATIENT
  Age: 55 Year
  Sex: Male

DRUGS (3)
  1. ALIMTA [Suspect]
     Active Substance: PEMETREXED DISODIUM
     Indication: LUNG ADENOCARCINOMA STAGE III
     Dosage: 1000 MG, CYCLICAL
     Route: 065
     Dates: start: 20161108
  2. CISPLATIN. [Concomitant]
     Active Substance: CISPLATIN
     Dosage: 70 MG, CYCLICAL
     Route: 065
     Dates: start: 20161108, end: 20170109
  3. AVASTIN [Concomitant]
     Active Substance: BEVACIZUMAB
     Dosage: 600 MG, CYCLICAL
     Route: 065
     Dates: start: 20161108

REACTIONS (2)
  - Neurotoxicity [Unknown]
  - Off label use [Unknown]

NARRATIVE: CASE EVENT DATE: 201611
